FAERS Safety Report 25177572 (Version 1)
Quarter: 2025Q2

REPORT INFORMATION
  Report Type: Other
  Country: GB (occurrence: GB)
  Receive Date: 20250409
  Receipt Date: 20250409
  Transmission Date: 20250716
  Serious: Yes (Other)
  Sender: MACLEODS
  Company Number: None

PATIENT

DRUGS (2)
  1. LEVOFLOXACIN [Suspect]
     Active Substance: LEVOFLOXACIN
     Indication: Pneumonia bacterial
     Dosage: 250MG TWICE A DAY FOR 5 DAYS (THIS WAS EXTENDED TO 1 500MG TWICE A DAY FOR 3 DAYS)
     Route: 065
     Dates: start: 20250327, end: 20250331
  2. CODEINE [Concomitant]
     Active Substance: CODEINE
     Indication: Pneumonia bacterial
     Dates: start: 20250327

REACTIONS (7)
  - Muscular weakness [Not Recovered/Not Resolved]
  - Tendon pain [Not Recovered/Not Resolved]
  - Confusional state [Not Recovered/Not Resolved]
  - Medication error [Unknown]
  - Dyspnoea [Unknown]
  - Groin pain [Unknown]
  - Arthralgia [Unknown]

NARRATIVE: CASE EVENT DATE: 20250327
